FAERS Safety Report 12091900 (Version 3)
Quarter: 2016Q1

REPORT INFORMATION
  Report Type: Spontaneous
  Country: FR (occurrence: FR)
  Receive Date: 20160219
  Receipt Date: 20160316
  Transmission Date: 20160526
  Serious: Yes (Other)
  Sender: FDA-Public Use
  Company Number: FR-AUROBINDO-AUR-APL-2016-01573

PATIENT
  Sex: Male
  Weight: 80 kg

DRUGS (2)
  1. VALSARTAN SANDOZ [Suspect]
     Active Substance: VALSARTAN
     Indication: PRODUCT USED FOR UNKNOWN INDICATION
     Dosage: 80 MG, UNK
     Route: 048
  2. VALSARTAN ARROW 80MG [Suspect]
     Active Substance: VALSARTAN
     Indication: PRODUCT USED FOR UNKNOWN INDICATION
     Dosage: UNK
     Route: 048
     Dates: start: 20151130, end: 201512

REACTIONS (7)
  - Malaise [Recovered/Resolved]
  - Hot flush [Recovered/Resolved]
  - Nausea [Recovered/Resolved]
  - Syncope [Recovered/Resolved]
  - Palpitations [Recovered/Resolved]
  - Disorientation [Recovered/Resolved]
  - Product substitution issue [Unknown]

NARRATIVE: CASE EVENT DATE: 2015
